FAERS Safety Report 7583578-9 (Version None)
Quarter: 2011Q2

REPORT INFORMATION
  Report Type: 
  Country: None (occurrence: None)
  Receive Date: 20110630
  Receipt Date: 20110610
  Transmission Date: 20111010
  Serious: Yes (Hospitalization)
  Sender: FDA-Public Use
  Company Number: A0807063A

PATIENT
  Age: 49 Year
  Sex: Male
  Weight: 92.7 kg

DRUGS (6)
  1. GLUCOPHAGE [Concomitant]
  2. LIPITOR [Concomitant]
  3. GLYBURIDE [Concomitant]
  4. AVANDIA [Suspect]
     Indication: DIABETES MELLITUS
     Dosage: 8MG PER DAY
     Route: 048
     Dates: start: 20000615, end: 20060101
  5. AVANDAMET [Suspect]
     Indication: DIABETES MELLITUS
     Route: 048
  6. LISINOPRIL [Concomitant]

REACTIONS (12)
  - EJECTION FRACTION DECREASED [None]
  - LEFT ATRIAL DILATATION [None]
  - UPPER RESPIRATORY TRACT INFECTION [None]
  - MYOCARDIAL INFARCTION [None]
  - MITRAL VALVE INCOMPETENCE [None]
  - TACHYCARDIA [None]
  - VENTRICULAR HYPOKINESIA [None]
  - PLEURISY [None]
  - CARDIAC FAILURE CONGESTIVE [None]
  - CARDIAC DISORDER [None]
  - ANGINA UNSTABLE [None]
  - LEFT VENTRICULAR DYSFUNCTION [None]
